FAERS Safety Report 16609916 (Version 1)
Quarter: 2019Q3

REPORT INFORMATION
  Report Type: Spontaneous
  Country: BR (occurrence: BR)
  Receive Date: 20190722
  Receipt Date: 20190722
  Transmission Date: 20191004
  Serious: Yes (Other)
  Sender: FDA-Public Use
  Company Number: BR-TAKEDA-2019TUS043984

PATIENT
  Sex: Male

DRUGS (1)
  1. DEXILANT [Suspect]
     Active Substance: DEXLANSOPRAZOLE
     Indication: PRODUCT USED FOR UNKNOWN INDICATION
     Dosage: UNK
     Route: 048

REACTIONS (8)
  - Suicidal ideation [Unknown]
  - Impaired work ability [Unknown]
  - Insomnia [Unknown]
  - Vision blurred [Unknown]
  - Adverse event [Unknown]
  - Dysstasia [Unknown]
  - Nasopharyngitis [Unknown]
  - Asthenia [Unknown]
